FAERS Safety Report 9489799 (Version 5)
Quarter: 2015Q1

REPORT INFORMATION
  Report Type: Spontaneous
  Country: US (occurrence: US)
  Receive Date: 20130725
  Receipt Date: 20150114
  Transmission Date: 20150721
  Serious: Yes (Hospitalization, Other)
  Sender: FDA-Public Use
  Company Number: US-GLAXOSMITHKLINE-A1004230A

PATIENT
  Sex: Female

DRUGS (1)
  1. AVANDIA [Suspect]
     Active Substance: ROSIGLITAZONE MALEATE
     Indication: DIABETES MELLITUS
     Dosage: 4 MG, BID
     Route: 048
     Dates: start: 200506, end: 20100415

REACTIONS (8)
  - Cardiomyopathy [Unknown]
  - Acute respiratory failure [Unknown]
  - Pulmonary oedema [Unknown]
  - Pleural effusion [Unknown]
  - Cardiac failure congestive [Not Recovered/Not Resolved]
  - Coronary artery disease [Unknown]
  - Atrial fibrillation [Unknown]
  - Left ventricular dysfunction [Unknown]
